FAERS Safety Report 14713468 (Version 2)
Quarter: 2018Q2

REPORT INFORMATION
  Report Type: Report from Study
  Country: None (occurrence: DE)
  Receive Date: 20180404
  Receipt Date: 20180510
  Transmission Date: 20180711
  Serious: Yes (Hospitalization, Other)
  Sender: FDA-Public Use
  Company Number: DE-ABBVIE-18K-062-2311341-00

PATIENT
  Age: 74 Year
  Sex: Male

DRUGS (9)
  1. EXELON [Concomitant]
     Active Substance: RIVASTIGMINE TARTRATE
     Indication: PRODUCT USED FOR UNKNOWN INDICATION
     Route: 048
  2. VITAMIN B12 [Concomitant]
     Active Substance: CYANOCOBALAMIN
     Indication: PRODUCT USED FOR UNKNOWN INDICATION
  3. DUODOPA [Suspect]
     Active Substance: CARBIDOPA\LEVODOPA
     Route: 050
  4. BETMIGA [Concomitant]
     Active Substance: MIRABEGRON
     Indication: PRODUCT USED FOR UNKNOWN INDICATION
  5. VENLAFAXIN [Concomitant]
     Active Substance: VENLAFAXINE HYDROCHLORIDE
     Indication: PRODUCT USED FOR UNKNOWN INDICATION
  6. NATULIND [Concomitant]
     Indication: PRODUCT USED FOR UNKNOWN INDICATION
  7. DUODOPA [Suspect]
     Active Substance: CARBIDOPA\LEVODOPA
     Indication: PARKINSON^S DISEASE
     Dosage: MD: 6 ML; CRD: 2,6 ML/H; ED: 1,5 ML
     Route: 050
     Dates: start: 20171227
  8. DOCITON [Concomitant]
     Active Substance: PROPRANOLOL HYDROCHLORIDE
     Indication: PRODUCT USED FOR UNKNOWN INDICATION
     Dosage: 1.5-1-1.5-1
     Route: 048
  9. TORASEMID [Concomitant]
     Active Substance: TORSEMIDE
     Indication: PRODUCT USED FOR UNKNOWN INDICATION

REACTIONS (23)
  - General physical health deterioration [Unknown]
  - Abdominal pain upper [Unknown]
  - Sinusitis [Unknown]
  - Bronchitis chronic [Not Recovered/Not Resolved]
  - Fatigue [Unknown]
  - Hyponatraemia [Recovering/Resolving]
  - Nutritional condition abnormal [Unknown]
  - Pancreatic steatosis [Unknown]
  - Hydrocholecystis [Unknown]
  - Infection [Unknown]
  - Pleural effusion [Unknown]
  - Lung hyperinflation [Unknown]
  - Stoma site discharge [Unknown]
  - Intentional medical device removal by patient [Unknown]
  - Ventricular tachycardia [Unknown]
  - Asthenia [Unknown]
  - Cardiac failure [Unknown]
  - Tachypnoea [Unknown]
  - Lung infection [Unknown]
  - Renal cyst [Unknown]
  - Stoma site erythema [Unknown]
  - Hypovolaemia [Recovering/Resolving]
  - Leukocytosis [Unknown]

NARRATIVE: CASE EVENT DATE: 2018
